FAERS Safety Report 6536478-7 (Version None)
Quarter: 2010Q1

REPORT INFORMATION
  Report Type: 
  Country: None (occurrence: None)
  Receive Date: 20100113
  Receipt Date: 20100111
  Transmission Date: 20100710
  Serious: Yes (Hospitalization)
  Sender: FDA-Public Use
  Company Number: US-MERCK-1001USA00275

PATIENT
  Age: 64 Year
  Sex: Female

DRUGS (15)
  1. JANUVIA [Suspect]
     Indication: TYPE 2 DIABETES MELLITUS
     Route: 048
     Dates: start: 20080519
  2. SINGULAIR [Concomitant]
     Indication: CHRONIC OBSTRUCTIVE PULMONARY DISEASE
     Route: 048
  3. SINGULAIR [Concomitant]
     Indication: ASTHMA
     Route: 048
  4. DIOVAN [Concomitant]
     Route: 065
  5. LASIX [Concomitant]
     Route: 065
  6. ASPIRIN [Concomitant]
     Route: 065
  7. TRAMADOL HCL [Concomitant]
     Route: 065
  8. METFORMIN [Concomitant]
     Route: 065
  9. POTASSIUM (UNSPECIFIED) [Concomitant]
     Route: 065
  10. VITAMIN E [Concomitant]
     Route: 065
  11. MIRAPEX [Concomitant]
     Route: 065
  12. ZOCOR [Concomitant]
     Route: 065
  13. STARLIX [Concomitant]
     Route: 065
  14. SYMBICORT [Concomitant]
     Route: 065
  15. FLUTICASONE PROPIONATE [Concomitant]
     Route: 065

REACTIONS (3)
  - BLOOD GLUCOSE INCREASED [None]
  - CHRONIC OBSTRUCTIVE PULMONARY DISEASE [None]
  - WEIGHT DECREASED [None]
